FAERS Safety Report 13230375 (Version 1)
Quarter: 2017Q1

REPORT INFORMATION
  Report Type: Spontaneous
  Country: US (occurrence: US)
  Receive Date: 20170214
  Receipt Date: 20170214
  Transmission Date: 20170428
  Serious: Yes (Disabling)
  Sender: FDA-Public Use
  Company Number: None

PATIENT
  Age: 67 Year
  Sex: Female
  Weight: 68.85 kg

DRUGS (9)
  1. MELATONIN [Concomitant]
     Active Substance: MELATONIN
  2. ADVIL [Concomitant]
     Active Substance: IBUPROFEN
  3. MYRBETRIQ [Suspect]
     Active Substance: MIRABEGRON
     Indication: HYPERTONIC BLADDER
     Dosage: ?          QUANTITY:1 TABLET(S);?
     Route: 048
     Dates: start: 20170128, end: 20170202
  4. L-THEANINE [Concomitant]
     Active Substance: DIETARY SUPPLEMENT
  5. POTASSIUM [Concomitant]
     Active Substance: POTASSIUM
  6. PRILOSEC [Concomitant]
     Active Substance: OMEPRAZOLE MAGNESIUM
  7. MAGNESIUM GLOCONATE [Concomitant]
  8. EXCEDRIN EXTRA STRENGTH [Concomitant]
     Active Substance: ACETAMINOPHEN\ASPIRIN\CAFFEINE
  9. TRIAM/HCTZ [Concomitant]

REACTIONS (7)
  - Foreign body sensation in eyes [None]
  - Visual impairment [None]
  - Eye pruritus [None]
  - Dry eye [None]
  - Eye pain [None]
  - Lacrimation increased [None]
  - Eye infection [None]

NARRATIVE: CASE EVENT DATE: 20170208
